FAERS Safety Report 19803364 (Version 4)
Quarter: 2022Q1

REPORT INFORMATION
  Report Type: Report from Study
  Country: US (occurrence: US)
  Receive Date: 20210908
  Receipt Date: 20220202
  Transmission Date: 20220424
  Serious: Yes (Other)
  Sender: FDA-Public Use
  Company Number: US-SA-SAC20210903000525

PATIENT
  Age: 67 Year
  Sex: Male

DRUGS (1)
  1. AGALSIDASE BETA [Suspect]
     Active Substance: AGALSIDASE BETA
     Indication: Fabry^s disease
     Dosage: 70 MG, QOW
     Route: 041
     Dates: start: 20210827

REACTIONS (4)
  - Angina pectoris [Recovering/Resolving]
  - Fatigue [Not Recovered/Not Resolved]
  - Hypertrophy [Unknown]
  - COVID-19 [Unknown]

NARRATIVE: CASE EVENT DATE: 20210902
